FAERS Safety Report 13670272 (Version 1)
Quarter: 2017Q2

REPORT INFORMATION
  Report Type: Spontaneous
  Country: DE (occurrence: DE)
  Receive Date: 20170620
  Receipt Date: 20170620
  Transmission Date: 20170830
  Serious: Yes (Congenital Anomaly, Other)
  Sender: FDA-Public Use
  Company Number: GXKR2017DE003225

PATIENT

DRUGS (11)
  1. FOLIO FORTE [Concomitant]
     Active Substance: FOLIC ACID\VITAMINS
     Indication: PROPHYLAXIS OF NEURAL TUBE DEFECT
     Dosage: 0.8 [MG/D ] (GW 1.5 TO 4.2)
     Route: 064
  2. IRON [Concomitant]
     Active Substance: IRON
     Indication: MINERAL SUPPLEMENTATION
     Dosage: 50 [MG/D ]/ SINCE 2014. AFTER GASTRIC BYPASS OPERATION
     Route: 064
     Dates: start: 20160403, end: 20161217
  3. OXYTOCIN. [Concomitant]
     Active Substance: OXYTOCIN
     Indication: LABOUR INDUCTION
     Dosage: UNK, GW 36.6
     Route: 064
     Dates: start: 20161217, end: 20161217
  4. LAMOTRIGINE. [Suspect]
     Active Substance: LAMOTRIGINE
     Indication: BIPOLAR DISORDER
     Dosage: 300 [MG/D ]
     Route: 064
     Dates: start: 20160403, end: 20161217
  5. VALDOXAN [Suspect]
     Active Substance: AGOMELATINE
     Indication: BIPOLAR DISORDER
     Dosage: 25 [MG/D ]
     Route: 064
     Dates: start: 20160403, end: 20161217
  6. VITAMIN B12 [Concomitant]
     Active Substance: CYANOCOBALAMIN
     Indication: VITAMIN SUPPLEMENTATION
     Dosage: 1000 [?G/MONTH ]/ SINCE 2014. AFTER GASTRIC BYPASS OPERATION (GW 0-36.6)
     Route: 064
  7. BEGRIPAL [Concomitant]
     Indication: IMMUNISATION
     Dosage: UNK, GW 25.1
     Route: 064
     Dates: start: 20160926, end: 20160926
  8. CITALOPRAM [Suspect]
     Active Substance: CITALOPRAM HYDROBROMIDE
     Indication: BIPOLAR DISORDER
     Dosage: 20 [MG/D ]
     Route: 064
     Dates: start: 20160403, end: 20161217
  9. L-THYROXINE [Concomitant]
     Active Substance: LEVOTHYROXINE
     Indication: HYPOTHYROIDISM
     Dosage: 150 [?G/D ]/ 112?G/D UNTIL WEEK 12, THEN 150?G/D
     Route: 064
     Dates: start: 20160403, end: 20161217
  10. CALCIUM [Concomitant]
     Active Substance: CALCIUM
     Indication: MINERAL SUPPLEMENTATION
     Dosage: 1200 [MG/D ]/ SINCE 2014. AFTER GASTRIC BYPASS OPERATION
     Route: 064
     Dates: start: 20160403, end: 20161217
  11. IBUPROFEN. [Concomitant]
     Active Substance: IBUPROFEN
     Indication: PAIN
     Dosage: ON DEMAND
     Route: 064

REACTIONS (2)
  - Haemangioma congenital [Recovering/Resolving]
  - Hyperbilirubinaemia neonatal [Recovered/Resolved]

NARRATIVE: CASE EVENT DATE: 20161217
